FAERS Safety Report 5416877-7 (Version None)
Quarter: 2007Q3

REPORT INFORMATION
  Report Type: 
  Country: None (occurrence: None)
  Receive Date: 20070816
  Receipt Date: 20070814
  Transmission Date: 20080115
  Serious: Yes (Other)
  Sender: FDA-Public Use
  Company Number: CH-BRISTOL-MYERS SQUIBB COMPANY-13845524

PATIENT
  Age: 71 Year
  Sex: Male

DRUGS (3)
  1. PRAVASTATIN [Suspect]
     Indication: PROPHYLAXIS
     Route: 048
     Dates: start: 20060401
  2. ASPIRIN [Concomitant]
  3. PLAVIX [Concomitant]
     Dates: start: 20060101

REACTIONS (1)
  - RETINAL TEAR [None]
